FAERS Safety Report 11620149 (Version 2)
Quarter: 2015Q4

REPORT INFORMATION
  Report Type: Spontaneous
  Country: US (occurrence: US)
  Receive Date: 20151012
  Receipt Date: 20151015
  Transmission Date: 20160304
  Serious: No
  Sender: FDA-Public Use
  Company Number: US-SA-2015SA124938

PATIENT
  Sex: Male

DRUGS (3)
  1. INSULIN BASAL [Concomitant]
     Active Substance: INSULIN NOS
  2. INSULINS AND ANALOGUES,FAST-ACTING [Concomitant]
     Active Substance: INSULIN NOS
  3. AFREZZA [Suspect]
     Active Substance: INSULIN HUMAN
     Indication: DIABETES MELLITUS
     Route: 065

REACTIONS (3)
  - Cough [Unknown]
  - Blood glucose fluctuation [Unknown]
  - Glycosylated haemoglobin increased [Unknown]
